FAERS Safety Report 6301178-5 (Version None)
Quarter: 2009Q3

REPORT INFORMATION
  Report Type: 
  Country: None (occurrence: None)
  Receive Date: 20090807
  Receipt Date: 20090727
  Transmission Date: 20100115
  Serious: Yes (Other)
  Sender: FDA-Public Use
  Company Number: PHEH2009US06276

PATIENT
  Sex: Female
  Weight: 52 kg

DRUGS (6)
  1. RECLAST [Suspect]
     Indication: OSTEOPOROSIS
     Dosage: 5 MG, ONCE/SINGLE
     Dates: start: 20090610, end: 20090610
  2. LYRICA [Concomitant]
     Indication: NEURALGIA
     Dosage: 75 MG, BID
     Route: 048
  3. HUMIRA [Concomitant]
     Indication: RHEUMATOID ARTHRITIS
     Dosage: 40 MG, QW2
     Route: 058
  4. ADDERALL 10 [Concomitant]
     Indication: ATTENTION DEFICIT/HYPERACTIVITY DISORDER
     Dosage: 10 MG, QD
     Route: 048
  5. LEXAPRO [Concomitant]
     Indication: DEPRESSION
     Dosage: 30 MG, QD
     Route: 048
  6. FOLIC ACID [Concomitant]
     Indication: SUPPLEMENTATION THERAPY
     Dosage: 1 MG, QD
     Route: 048

REACTIONS (12)
  - BLINDNESS [None]
  - DIARRHOEA [None]
  - MACULAR DEGENERATION [None]
  - MYALGIA [None]
  - NAUSEA [None]
  - OCULAR HYPERAEMIA [None]
  - OEDEMA PERIPHERAL [None]
  - PARAESTHESIA [None]
  - PHOTOSENSITIVITY REACTION [None]
  - VISION BLURRED [None]
  - VISUAL ACUITY REDUCED [None]
  - VOMITING [None]
